FAERS Safety Report 6248576-6 (Version None)
Quarter: 2009Q2

REPORT INFORMATION
  Report Type: 
  Country: None (occurrence: None)
  Receive Date: 20090624
  Receipt Date: 20090624
  Transmission Date: 20091009
  Serious: No
  Sender: FDA-Public Use
  Company Number: None

PATIENT
  Age: 89 Year
  Sex: Female
  Weight: 68.6 kg

DRUGS (6)
  1. HEPARIN [Suspect]
     Indication: PROPHYLAXIS
     Dosage: 500-700 UNITS/HR IV
     Route: 042
     Dates: start: 20090414, end: 20090424
  2. INSULIN [Concomitant]
  3. DOCUSATE [Concomitant]
  4. FUROSEMIDE [Concomitant]
  5. LANSOPRAZOLE [Concomitant]
  6. METOPROLOL [Concomitant]

REACTIONS (1)
  - HEPARIN-INDUCED THROMBOCYTOPENIA [None]
